FAERS Safety Report 5142325-0 (Version None)
Quarter: 2006Q4

REPORT INFORMATION
  Report Type: 
  Country: None (occurrence: None)
  Receive Date: 20061102
  Receipt Date: 20061024
  Transmission Date: 20070319
  Serious: Yes (Other)
  Sender: FDA-Public Use
  Company Number: BR-ROCHE-468730

PATIENT
  Sex: Female

DRUGS (3)
  1. ROACUTAN [Suspect]
     Indication: ACNE
     Route: 048
     Dates: start: 20060615, end: 20060615
  2. ROACUTAN [Suspect]
     Dosage: THERAPY REINTRODUCED AFTER APPROXIMATELY THREE WEEKS.
     Route: 048
     Dates: start: 20060615, end: 20060615
  3. ROACUTAN [Suspect]
     Route: 048
     Dates: start: 20060615

REACTIONS (2)
  - DRY EYE [None]
  - MEIBOMIANITIS [None]
